FAERS Safety Report 17960974 (Version 1)
Quarter: 2020Q2

REPORT INFORMATION
  Report Type: Report from Study
  Country: None (occurrence: US)
  Receive Date: 20200630
  Receipt Date: 20200630
  Transmission Date: 20200714
  Serious: No
  Sender: FDA-Public Use
  Company Number: US-BIOVITRUM-2019US3678

PATIENT
  Age: 69 Year
  Sex: Male

DRUGS (7)
  1. COLCHICINE. [Concomitant]
     Active Substance: COLCHICINE
  2. KINERET [Suspect]
     Active Substance: ANAKINRA
     Route: 058
     Dates: start: 20191010
  3. METFORMIN [Concomitant]
     Active Substance: METFORMIN HYDROCHLORIDE
  4. STATIN [Concomitant]
     Active Substance: UNSPECIFIED INGREDIENT
  5. CRESTOR [Concomitant]
     Active Substance: ROSUVASTATIN CALCIUM
  6. KINERET [Suspect]
     Active Substance: ANAKINRA
     Indication: PERICARDIAL DISEASE
     Route: 058
     Dates: start: 20191005
  7. KINERET [Suspect]
     Active Substance: ANAKINRA
     Route: 058
     Dates: start: 20191008

REACTIONS (6)
  - Erythema [Unknown]
  - Injection site irritation [Unknown]
  - Pruritus [Unknown]
  - Injection site swelling [Unknown]
  - Injection site pruritus [Unknown]
  - Off label use [Unknown]

NARRATIVE: CASE EVENT DATE: 20191005
